FAERS Safety Report 4761276-4 (Version None)
Quarter: 2005Q3

REPORT INFORMATION
  Report Type: 
  Country: None (occurrence: None)
  Receive Date: 20050906
  Receipt Date: 20050826
  Transmission Date: 20060218
  Serious: Yes (Hospitalization)
  Sender: FDA-Public Use
  Company Number: US-JNJFOC-20050701441

PATIENT
  Sex: Female
  Weight: 133.81 kg

DRUGS (12)
  1. REMICADE [Suspect]
     Route: 042
  2. REMICADE [Suspect]
     Route: 042
  3. REMICADE [Suspect]
     Route: 042
  4. REMICADE [Suspect]
     Route: 042
  5. REMICADE [Suspect]
     Indication: RHEUMATOID ARTHRITIS
     Dosage: 3 MG/KG
     Route: 042
  6. CLONIDINE [Concomitant]
  7. LASIX [Concomitant]
  8. SYNTHROID [Concomitant]
  9. LOTREL [Concomitant]
  10. LOTREL [Concomitant]
  11. METHOTREXATE [Concomitant]
     Dosage: 2.5 (7.5 MG)
  12. FOLIC ACID [Concomitant]

REACTIONS (2)
  - ACOUSTIC NEUROMA [None]
  - HERPES ZOSTER [None]
